FAERS Safety Report 11889130 (Version 2)
Quarter: 2016Q1

REPORT INFORMATION
  Report Type: Spontaneous
  Country: JP (occurrence: JP)
  Receive Date: 20160105
  Receipt Date: 20160316
  Transmission Date: 20160526
  Serious: Yes (Life-Threatening, Hospitalization, Other)
  Sender: FDA-Public Use
  Company Number: JP-ELI_LILLY_AND_COMPANY-JP201512002645

PATIENT
  Age: 66 Year
  Sex: Female

DRUGS (11)
  1. HEPARIN SODIUM AVENTIS [Suspect]
     Active Substance: HEPARIN SODIUM
     Dosage: 12000 IU, UNK
     Route: 065
     Dates: start: 20150910, end: 20150910
  2. BAYASPIRIN [Suspect]
     Active Substance: ASPIRIN
     Indication: PRODUCT USED FOR UNKNOWN INDICATION
     Dosage: UNK UNK, UNKNOWN
     Route: 048
     Dates: start: 20150910, end: 20150910
  3. EFIENT [Suspect]
     Active Substance: PRASUGREL HYDROCHLORIDE
     Indication: PERCUTANEOUS CORONARY INTERVENTION
     Dosage: 20 MG, QD
     Route: 048
     Dates: start: 20150910, end: 20150910
  4. NORADRENALINE HYDROCHLORIDE [Concomitant]
     Active Substance: NORADRENALINE HYDROCHLORIDE
     Dosage: 3MG/DAY
     Route: 065
     Dates: end: 20150918
  5. SELTOUCH [Concomitant]
     Active Substance: FELBINAC
     Dosage: UNK
     Route: 065
  6. MOSAPRIDE CITRATE [Concomitant]
     Active Substance: MOSAPRIDE CITRATE
     Dosage: 2.5 MG, TID
     Route: 065
  7. SOLDEM 1 [Concomitant]
     Active Substance: DEXTROSE\SODIUM CHLORIDE\SODIUM LACTATE
     Dosage: 1000 ML, UNK
     Route: 065
     Dates: start: 20150910, end: 20150911
  8. EFIENT [Suspect]
     Active Substance: PRASUGREL HYDROCHLORIDE
     Indication: ACUTE CORONARY SYNDROME
  9. REGPARA [Concomitant]
     Active Substance: CINACALCET HYDROCHLORIDE
     Dosage: 25 MG, QD
     Route: 065
  10. FOSRENOL [Concomitant]
     Active Substance: LANTHANUM CARBONATE
     Dosage: 250 MG, QID
     Route: 065
  11. TRANSAMIN [Concomitant]
     Active Substance: TRANEXAMIC ACID
     Dosage: 2000 MG, QD
     Route: 065
     Dates: end: 20150910

REACTIONS (4)
  - Haemorrhagic anaemia [Recovering/Resolving]
  - Retroperitoneal haemorrhage [Recovering/Resolving]
  - Hypovolaemic shock [Recovering/Resolving]
  - Cerebral infarction [Unknown]

NARRATIVE: CASE EVENT DATE: 20150910
